FAERS Safety Report 9717778 (Version 3)
Quarter: 2014Q2

REPORT INFORMATION
  Report Type: Report from Study
  Country: JP (occurrence: JP)
  Receive Date: 20131127
  Receipt Date: 20140624
  Transmission Date: 20141212
  Serious: Yes (Other)
  Sender: FDA-Public Use
  Company Number: JP-GLAXOSMITHKLINE-B0948005A

PATIENT
  Age: 78 Year
  Sex: Male

DRUGS (26)
  1. REQUIP [Suspect]
     Indication: PARKINSON^S DISEASE
     Dosage: 6MG PER DAY
     Route: 048
     Dates: start: 20130415, end: 20130421
  2. REQUIP [Suspect]
     Indication: PARKINSON^S DISEASE
     Dosage: 8MG PER DAY
     Route: 048
     Dates: start: 20130422, end: 20130707
  3. REQUIP [Suspect]
     Indication: PARKINSON^S DISEASE
     Dosage: 10MG PER DAY
     Route: 048
     Dates: start: 20130708, end: 20130721
  4. REQUIP [Suspect]
     Indication: PARKINSON^S DISEASE
     Dosage: 12MG PER DAY
     Route: 048
     Dates: start: 20130722, end: 20130818
  5. REQUIP [Suspect]
     Indication: PARKINSON^S DISEASE
     Dosage: 2MG THREE TIMES PER DAY
     Route: 048
     Dates: start: 20130819, end: 20131010
  6. REQUIP [Suspect]
     Indication: PARKINSON^S DISEASE
     Dosage: 2MG TWICE PER DAY
     Route: 048
     Dates: start: 20131011, end: 20131017
  7. REQUIP [Suspect]
     Indication: PARKINSON^S DISEASE
     Dosage: 2MG THREE TIMES PER DAY
     Route: 048
     Dates: start: 20131018, end: 20140116
  8. SYMMETREL [Suspect]
     Indication: PARKINSON^S DISEASE
     Route: 048
     Dates: start: 20130528, end: 20130908
  9. SYMMETREL [Suspect]
     Indication: PARKINSON^S DISEASE
     Route: 048
     Dates: start: 20130909, end: 20131006
  10. SYMMETREL [Suspect]
     Indication: PARKINSON^S DISEASE
     Route: 048
     Dates: start: 20131007, end: 20140116
  11. MADOPAR [Suspect]
     Indication: PARKINSON^S DISEASE
     Route: 048
     Dates: start: 20130624, end: 20130721
  12. MADOPAR [Suspect]
     Indication: PARKINSON^S DISEASE
     Route: 048
     Dates: start: 20130805, end: 20130811
  13. MADOPAR [Suspect]
     Indication: PARKINSON^S DISEASE
     Route: 048
     Dates: start: 20130812, end: 20131017
  14. MADOPAR [Suspect]
     Indication: PARKINSON^S DISEASE
     Route: 048
     Dates: start: 20131018, end: 20140116
  15. DOPACOL [Concomitant]
     Indication: PARKINSON^S DISEASE
     Route: 048
     Dates: end: 20130623
  16. TRERIEF [Concomitant]
     Indication: PARKINSON^S DISEASE
     Dosage: 25MG PER DAY
     Route: 048
     Dates: end: 20130804
  17. DOPS [Concomitant]
     Indication: PARKINSON^S DISEASE
     Route: 048
     Dates: start: 20130528, end: 20140116
  18. MENESIT [Concomitant]
     Indication: PARKINSON^S DISEASE
     Route: 048
     Dates: start: 20130722, end: 20130728
  19. MENESIT [Concomitant]
     Indication: PARKINSON^S DISEASE
     Route: 048
     Dates: start: 20130729, end: 20130804
  20. NOURIAST [Concomitant]
     Indication: PARKINSON^S DISEASE
     Dosage: 20MG PER DAY
     Route: 048
     Dates: start: 20130722, end: 20131010
  21. NOURIAST [Concomitant]
     Indication: PARKINSON^S DISEASE
     Route: 048
     Dates: start: 20131011, end: 20140116
  22. COMTAN [Concomitant]
     Indication: PARKINSON^S DISEASE
     Route: 048
     Dates: start: 20130902, end: 20140116
  23. AMITIZA [Concomitant]
     Route: 048
     Dates: end: 20131101
  24. EXELON [Concomitant]
     Route: 062
     Dates: end: 20140116
  25. UNKNOWN [Concomitant]
     Route: 062
     Dates: end: 20140116
  26. MEMARY [Concomitant]
     Route: 048
     Dates: end: 20140116

REACTIONS (2)
  - Sudden onset of sleep [Recovered/Resolved]
  - Somnolence [Recovered/Resolved]
